FAERS Safety Report 6021457-9 (Version None)
Quarter: 2008Q4

REPORT INFORMATION
  Report Type: 
  Country: None (occurrence: None)
  Receive Date: 20081229
  Receipt Date: 20081217
  Transmission Date: 20090506
  Serious: Yes (Death)
  Sender: FDA-Public Use
  Company Number: IN-AVENTIS-200811981GDDC

PATIENT
  Age: 64 Year
  Sex: Female

DRUGS (2)
  1. DOCETAXEL [Suspect]
     Route: 042
     Dates: start: 20080131, end: 20080131
  2. CAPECITABINE [Suspect]
     Route: 048
     Dates: start: 20080131, end: 20080217

REACTIONS (1)
  - MUCOSAL INFLAMMATION [None]
